FAERS Safety Report 13970375 (Version 2)
Quarter: 2017Q4

REPORT INFORMATION
  Report Type: Report from Study
  Country: LB (occurrence: LB)
  Receive Date: 20170914
  Receipt Date: 20171023
  Transmission Date: 20180321
  Serious: Yes (Death, Hospitalization)
  Sender: FDA-Public Use
  Company Number: PHHY2017LB135726

PATIENT
  Age: 37 Year
  Sex: Male

DRUGS (1)
  1. EXJADE [Suspect]
     Active Substance: DEFERASIROX
     Indication: SICKLE CELL ANAEMIA
     Dosage: 1500 MG, QD
     Route: 048
     Dates: start: 201708

REACTIONS (2)
  - Sickle cell anaemia with crisis [Unknown]
  - Hepatic failure [Fatal]

NARRATIVE: CASE EVENT DATE: 20170830
